FAERS Safety Report 14898774 (Version 1)
Quarter: 2018Q2

REPORT INFORMATION
  Report Type: Spontaneous
  Country: CA (occurrence: CA)
  Receive Date: 20180515
  Receipt Date: 20180515
  Transmission Date: 20180711
  Serious: Yes (Other)
  Sender: FDA-Public Use
  Company Number: CA-SA-2018SA124868

PATIENT
  Age: 64 Year
  Sex: Female
  Weight: 95.23 kg

DRUGS (12)
  1. ORENCIA [Suspect]
     Active Substance: ABATACEPT
     Indication: RHEUMATOID ARTHRITIS
     Route: 065
  2. SYNTHROID [Concomitant]
     Active Substance: LEVOTHYROXINE SODIUM
  3. RANITIDINE. [Concomitant]
     Active Substance: RANITIDINE
  4. LEUCOVORIN. [Concomitant]
     Active Substance: LEUCOVORIN
  5. HYDROCHLOROTHIAZIDE. [Concomitant]
     Active Substance: HYDROCHLOROTHIAZIDE
  6. METHOTREXATE. [Concomitant]
     Active Substance: METHOTREXATE
     Route: 065
     Dates: start: 200806
  7. LEFLUNOMIDE. [Suspect]
     Active Substance: LEFLUNOMIDE
     Indication: RHEUMATOID ARTHRITIS
     Route: 048
  8. COLCHICINE. [Suspect]
     Active Substance: COLCHICINE
     Indication: HYPERSENSITIVITY VASCULITIS
     Route: 065
  9. ATENOLOL. [Concomitant]
     Active Substance: ATENOLOL
  10. ENBREL [Suspect]
     Active Substance: ETANERCEPT
     Indication: RHEUMATOID ARTHRITIS
     Dosage: SOLUTION FOR INJECTION IN PRE-FILLED PEN
     Route: 058
     Dates: start: 20160915, end: 20170127
  11. COVERSYL [Concomitant]
     Active Substance: PERINDOPRIL
  12. CELEBREX [Concomitant]
     Active Substance: CELECOXIB

REACTIONS (7)
  - Condition aggravated [Unknown]
  - Rheumatoid arthritis [Not Recovered/Not Resolved]
  - Hypersensitivity vasculitis [Recovered/Resolved]
  - Musculoskeletal stiffness [Unknown]
  - Fatigue [Unknown]
  - Drug effect decreased [Unknown]
  - Drug ineffective [Unknown]

NARRATIVE: CASE EVENT DATE: 20161212
